FAERS Safety Report 19791334 (Version 1)
Quarter: 2021Q3

REPORT INFORMATION
  Report Type: Spontaneous
  Country: GB (occurrence: GB)
  Receive Date: 20210906
  Receipt Date: 20210906
  Transmission Date: 20211014
  Serious: Yes (Hospitalization, Other)
  Sender: FDA-Public Use
  Company Number: GB-MICRO LABS LIMITED-ML2021-02220

PATIENT
  Age: 68 Year
  Sex: Male
  Weight: 95 kg

DRUGS (6)
  1. TAFINLAR [Suspect]
     Active Substance: DABRAFENIB MESYLATE
     Route: 065
     Dates: end: 20210621
  2. RAMIPRIL. [Suspect]
     Active Substance: RAMIPRIL
     Route: 065
     Dates: start: 20210701
  3. TAFINLAR [Suspect]
     Active Substance: DABRAFENIB MESYLATE
     Route: 065
     Dates: start: 20210701
  4. BISOPROLOL. [Suspect]
     Active Substance: BISOPROLOL FUMARATE
     Route: 065
     Dates: start: 20210702
  5. ATORVASTATIN [Suspect]
     Active Substance: ATORVASTATIN
     Indication: PRODUCT USED FOR UNKNOWN INDICATION
     Route: 065
  6. MEKINIST [Suspect]
     Active Substance: TRAMETINIB DIMETHYL SULFOXIDE
     Route: 065
     Dates: end: 20210621

REACTIONS (7)
  - Pneumothorax [Recovered/Resolved]
  - Diffuse large B-cell lymphoma [Unknown]
  - Dyspnoea [Unknown]
  - Oedema peripheral [Unknown]
  - Ejection fraction decreased [Unknown]
  - Left ventricular dysfunction [Not Recovered/Not Resolved]
  - Device dislocation [Recovered/Resolved]

NARRATIVE: CASE EVENT DATE: 20210621
